FAERS Safety Report 9346700 (Version 1)
Quarter: 2013Q2

REPORT INFORMATION
  Report Type: Spontaneous
  Country: IT (occurrence: IT)
  Receive Date: 20130613
  Receipt Date: 20130613
  Transmission Date: 20140414
  Serious: Yes (Hospitalization)
  Sender: FDA-Public Use
  Company Number: IT-MERCK-1306ITA004761

PATIENT
  Age: 80 Year
  Sex: Male

DRUGS (9)
  1. SIMVASTATIN [Suspect]
     Indication: HYPERCHOLESTEROLAEMIA
     Dosage: 20 MG, QD
     Route: 048
     Dates: start: 20130101
  2. COUMADIN [Interacting]
     Indication: AORTIC VALVE REPLACEMENT
     Dosage: 1 DOSE, PRN
     Route: 048
     Dates: start: 20130301, end: 20130422
  3. COUMADIN [Interacting]
     Dosage: 1 DOSE, PRN
     Route: 048
     Dates: start: 2013
  4. LASIX (FUROSEMIDE) [Concomitant]
  5. ACTRAPID [Concomitant]
  6. LANTUS [Concomitant]
     Route: 058
  7. LANSOPRAZOLE [Concomitant]
  8. RAMIPRIL [Concomitant]
  9. ALLOPURINOL [Concomitant]

REACTIONS (2)
  - International normalised ratio increased [Recovered/Resolved]
  - Drug interaction [Recovered/Resolved]
